FAERS Safety Report 7890640-X (Version None)
Quarter: 2011Q4

REPORT INFORMATION
  Report Type: 
  Country: None (occurrence: None)
  Receive Date: 20111103
  Receipt Date: 20110721
  Transmission Date: 20120403
  Serious: No
  Sender: FDA-Public Use
  Company Number: US-AMGEN-USASP2011037276

PATIENT
  Age: 52 Year
  Sex: Female

DRUGS (1)
  1. ENBREL [Suspect]
     Indication: RHEUMATOID ARTHRITIS
     Dosage: 50 MG, QWK
     Dates: start: 20071028

REACTIONS (6)
  - PROTEIN URINE PRESENT [None]
  - SINUSITIS [None]
  - RENAL FUNCTION TEST ABNORMAL [None]
  - SINUS HEADACHE [None]
  - GASTRIC INFECTION [None]
  - GASTRIC ULCER [None]
